FAERS Safety Report 9855983 (Version 1)
Quarter: 2013Q4

REPORT INFORMATION
  Report Type: Spontaneous
  Country: US (occurrence: None)
  Receive Date: 20131226
  Receipt Date: 20131226
  Transmission Date: 20140711
  Serious: Yes (Other)
  Sender: FDA-Public Use
  Company Number: PHEH2013US012811

PATIENT
  Age: 67 Year
  Sex: Female

DRUGS (6)
  1. GILENYA (FINGOLIMOD) CAPSULE, 0.5MG [Suspect]
     Route: 048
     Dates: start: 20130606
  2. TOVIAZ (FESOTERODINE FUMARATE) [Concomitant]
  3. VITAMIN B12 (CYANOCOBALAMIN) [Concomitant]
  4. CALCIUM +D (CALCIUM CARBONATE, COLECALCIFEROL) [Concomitant]
  5. VITAMIN C (ASCORBIC ACID) [Concomitant]
  6. COQ10 (UBIDECARENONE) [Concomitant]

REACTIONS (2)
  - Fatigue [None]
  - Vision blurred [None]
